FAERS Safety Report 24854423 (Version 1)
Quarter: 2025Q1

REPORT INFORMATION
  Report Type: Report from Study
  Country: US (occurrence: US)
  Receive Date: 20250117
  Receipt Date: 20250117
  Transmission Date: 20250408
  Serious: Yes (Other)
  Sender: RECORDATI
  Company Number: US-RECORDATI RARE DISEASE INC.-2025000093

PATIENT

DRUGS (12)
  1. SIGNIFOR LAR [Suspect]
     Active Substance: PASIREOTIDE PAMOATE
     Indication: Pituitary-dependent Cushing^s syndrome
     Dosage: 20 MILLIGRAM, QM (EVERY 30 DAYS)
     Route: 030
  2. ATORVASTATIN CALCIUM [Concomitant]
     Active Substance: ATORVASTATIN CALCIUM
     Indication: Product used for unknown indication
     Dosage: 40 MILLIGRAM, QD
     Route: 048
     Dates: start: 20210105
  3. CYCLOBENZAPRINE HYDROCHLORIDE [Concomitant]
     Active Substance: CYCLOBENZAPRINE HYDROCHLORIDE
     Indication: Product used for unknown indication
     Dosage: 10 MILLIGRAM, TID
     Route: 048
     Dates: start: 20210105
  4. IBUPROFEN [Concomitant]
     Active Substance: IBUPROFEN
     Indication: Product used for unknown indication
     Dosage: 800 MILLIGRAM, Q6H
     Route: 048
     Dates: start: 20170101
  5. LIDOCAINE [Concomitant]
     Active Substance: LIDOCAINE
     Indication: Product used for unknown indication
     Dosage: 2 PERCENT, QD (EXTERNAL USE)
     Route: 061
     Dates: start: 20210105
  6. PANTOPRAZOLE SODIUM [Concomitant]
     Active Substance: PANTOPRAZOLE SODIUM
     Indication: Product used for unknown indication
     Dosage: 40 MILLIGRAM, QD, TABLET DEL
     Route: 048
     Dates: start: 20240501
  7. PRAMIPEXOLE DIHYDROCHLORIDE [Concomitant]
     Active Substance: PRAMIPEXOLE DIHYDROCHLORIDE
     Indication: Product used for unknown indication
     Dosage: 0.5 MILLIGRAM, TID
     Route: 048
     Dates: start: 20210105
  8. PYRIDOSTIGMINE BROMIDE [Concomitant]
     Active Substance: PYRIDOSTIGMINE BROMIDE
     Indication: Product used for unknown indication
     Dosage: 60 MILLIGRAM, TID, TABLET
     Route: 048
     Dates: start: 20240501
  9. TOPIRAMATE [Concomitant]
     Active Substance: TOPIRAMATE
     Indication: Product used for unknown indication
     Dosage: 25 MILLIGRAM, TID, TABLET
     Route: 048
     Dates: start: 20240501
  10. TRAZODONE HCL [Concomitant]
     Active Substance: TRAZODONE HYDROCHLORIDE
     Indication: Product used for unknown indication
     Dosage: 50 MILLIGRAM, QD AT BEDTIME
     Route: 048
     Dates: start: 20200824
  11. VITAMIN B12 [Concomitant]
     Active Substance: CYANOCOBALAMIN
     Indication: Product used for unknown indication
     Dosage: 2000 MICROGRAM, QOD
     Route: 048
     Dates: start: 20231001
  12. ADULT MULTIVITAMIN [Concomitant]
     Indication: Product used for unknown indication
     Dosage: 1 DOSAGE FORM (TABLET), QD
     Route: 048
     Dates: start: 20080101

REACTIONS (2)
  - Fall [Not Recovered/Not Resolved]
  - Lower limb fracture [Not Recovered/Not Resolved]

NARRATIVE: CASE EVENT DATE: 20241201
